FAERS Safety Report 6015187-7 (Version None)
Quarter: 2008Q4

REPORT INFORMATION
  Report Type: 
  Country: None (occurrence: None)
  Receive Date: 20081219
  Receipt Date: 20081219
  Transmission Date: 20090506
  Serious: Yes (Death)
  Sender: FDA-Public Use
  Company Number: None

PATIENT
  Age: 22 Year
  Sex: Female
  Weight: 70.3075 kg

DRUGS (2)
  1. HYDROMORPHONE HCL [Suspect]
     Indication: PAIN
     Dosage: 5MG/ML 2MG Q. 8 MINUTES
     Dates: start: 20081020, end: 20081022
  2. HYDROMORPHONE HCL [Suspect]
     Indication: SICKLE CELL ANAEMIA WITH CRISIS
     Dosage: 5MG/ML 2MG Q. 8 MINUTES
     Dates: start: 20081020, end: 20081022

REACTIONS (3)
  - MEDICATION ERROR [None]
  - THERAPY REGIMEN CHANGED [None]
  - UNRESPONSIVE TO STIMULI [None]
